FAERS Safety Report 22123758 (Version 1)
Quarter: 2023Q1

REPORT INFORMATION
  Report Type: Spontaneous
  Country: IL (occurrence: None)
  Receive Date: 20230322
  Receipt Date: 20230322
  Transmission Date: 20230417
  Serious: Yes (Hospitalization)
  Sender: FDA-Public Use
  Company Number: 2023A064125

PATIENT
  Age: 92 Year
  Sex: Male

DRUGS (12)
  1. SEROQUEL [Suspect]
     Active Substance: QUETIAPINE FUMARATE
     Route: 048
     Dates: start: 20221129
  2. BISACODYL [Concomitant]
     Active Substance: BISACODYL
  3. SPIRONOLACTONE [Concomitant]
     Active Substance: SPIRONOLACTONE
  4. ALLOPURINOL [Concomitant]
     Active Substance: ALLOPURINOL
  5. LORAZEPAM [Concomitant]
     Active Substance: LORAZEPAM
  6. METOLAZONE [Concomitant]
     Active Substance: METOLAZONE
  7. LIPITOR [Concomitant]
     Active Substance: ATORVASTATIN CALCIUM
  8. BISOPROLOL FUMARATE [Concomitant]
     Active Substance: BISOPROLOL FUMARATE
  9. ALFUZOSIN ER TEVA [Concomitant]
  10. DUTASTERIDE\TAMSULOSIN [Concomitant]
     Active Substance: DUTASTERIDE\TAMSULOSIN
  11. FEXOFENADINE -TRIMA [Concomitant]
  12. EDOXABAN TOSYLATE [Concomitant]
     Active Substance: EDOXABAN TOSYLATE

REACTIONS (2)
  - Neutropenia [Unknown]
  - Pancytopenia [Unknown]
